FAERS Safety Report 14324226 (Version 2)
Quarter: 2018Q1

REPORT INFORMATION
  Report Type: Spontaneous
  Country: JP (occurrence: JP)
  Receive Date: 20171226
  Receipt Date: 20180121
  Transmission Date: 20180509
  Serious: Yes (Hospitalization)
  Sender: FDA-Public Use
  Company Number: PHJP2017JP036499

PATIENT
  Age: 83 Year

DRUGS (1)
  1. ZYKADIA [Suspect]
     Active Substance: CERITINIB
     Indication: NON-SMALL CELL LUNG CANCER
     Dosage: 750 MG, QD
     Route: 048

REACTIONS (2)
  - Blood glucose increased [Unknown]
  - Hepatic function abnormal [Not Recovered/Not Resolved]
